FAERS Safety Report 4327606-2 (Version None)
Quarter: 2004Q1

REPORT INFORMATION
  Report Type: 
  Country: None (occurrence: None)
  Receive Date: 20040325
  Receipt Date: 20040309
  Transmission Date: 20041129
  Serious: Yes (Hospitalization, Disabling)
  Sender: FDA-Public Use
  Company Number: 2004AP01586

PATIENT
  Age: 57 Year
  Sex: Male

DRUGS (8)
  1. IRESSA [Suspect]
     Indication: LUNG ADENOCARCINOMA
     Dosage: 250 MG DAILY PO
     Route: 048
     Dates: start: 20031023, end: 20040210
  2. MEVALOTIN [Concomitant]
  3. ALTAT [Concomitant]
  4. CISPLATIN [Concomitant]
  5. VINORELBINE TARTRATE [Concomitant]
  6. PACLITAXEL [Concomitant]
  7. CARBOPLATIN [Concomitant]
  8. GEMCITABINE [Concomitant]

REACTIONS (6)
  - ANOREXIA [None]
  - DIZZINESS [None]
  - HYPOACUSIS [None]
  - LUNG ADENOCARCINOMA STAGE IV [None]
  - MALIGNANT NEOPLASM PROGRESSION [None]
  - TINNITUS [None]
